FAERS Safety Report 15622525 (Version 1)
Quarter: 2018Q4

REPORT INFORMATION
  Report Type: Spontaneous
  Country: FR (occurrence: FR)
  Receive Date: 20181115
  Receipt Date: 20181115
  Transmission Date: 20190205
  Serious: Yes (Other)
  Sender: FDA-Public Use
  Company Number: FR-TEVA-2018-FR-975248

PATIENT
  Age: 59 Year
  Sex: Female

DRUGS (1)
  1. FURADANTINE 50 MG, G?LULE [Suspect]
     Active Substance: NITROFURANTOIN
     Indication: PROPHYLAXIS URINARY TRACT INFECTION
     Dosage: 300 MILLIGRAM DAILY;
     Route: 048
     Dates: start: 20180904, end: 20180911

REACTIONS (6)
  - Malaise [Recovered/Resolved]
  - Mixed liver injury [Recovered/Resolved]
  - Erythema [Recovered/Resolved]
  - Hyperthermia [Recovered/Resolved]
  - Lymphopenia [Recovered/Resolved]
  - Chills [Recovered/Resolved]

NARRATIVE: CASE EVENT DATE: 20180910
